FAERS Safety Report 10828103 (Version 1)
Quarter: 2015Q1

REPORT INFORMATION
  Report Type: Spontaneous
  Country: US (occurrence: US)
  Receive Date: 20150219
  Receipt Date: 20150219
  Transmission Date: 20150721
  Serious: No
  Sender: FDA-Public Use
  Company Number: US-009507513-1502USA008330

PATIENT
  Sex: Male

DRUGS (1)
  1. SINGULAIR [Suspect]
     Active Substance: MONTELUKAST SODIUM
     Indication: RESPIRATORY DISORDER
     Dosage: UNK
     Route: 048

REACTIONS (2)
  - Nervous system disorder [Recovering/Resolving]
  - Therapeutic response unexpected [Unknown]
